FAERS Safety Report 7559800-1 (Version None)
Quarter: 2011Q2

REPORT INFORMATION
  Report Type: 
  Country: None (occurrence: None)
  Receive Date: 20110601
  Receipt Date: 20110517
  Transmission Date: 20111010
  Serious: Yes (Other)
  Sender: FDA-Public Use
  Company Number: 2011PROUSA00315

PATIENT
  Age: 76 Year
  Sex: Male
  Weight: 72.1 kg

DRUGS (13)
  1. PRILOSEC [Concomitant]
  2. PROVENGE [Suspect]
  3. CALCIUM (CALCIUM) [Concomitant]
  4. PROVENGE [Suspect]
     Indication: PROSTATE CANCER METASTATIC
     Dosage: 250 ML, SINGLE, INTRAVENOUS
     Route: 042
     Dates: start: 20101213, end: 20101213
  5. PROVENGE [Suspect]
     Indication: PROSTATE CANCER METASTATIC
     Dosage: 250 ML, SINGLE, INTRAVENOUS
     Route: 042
     Dates: start: 20101122, end: 20101122
  6. PROVENGE [Suspect]
     Indication: PROSTATE CANCER METASTATIC
     Dosage: 250 ML, SINGLE, INTRAVENOUS
     Route: 042
     Dates: start: 20110114, end: 20110114
  7. ZOMETA [Concomitant]
  8. LUPRON [Concomitant]
  9. ZETIA [Concomitant]
  10. ASPIRIN [Concomitant]
  11. IBUPROFEN [Concomitant]
  12. PROVENGE [Suspect]
  13. CENTRUM SILVER /01292501/ (ASCORBIC ACID, CALCIUM, MINERALS NOS, RETIN [Concomitant]

REACTIONS (2)
  - DIABETES MELLITUS [None]
  - DEEP VEIN THROMBOSIS [None]
